FAERS Safety Report 4676507-9 (Version None)
Quarter: 2005Q2

REPORT INFORMATION
  Report Type: 
  Country: None (occurrence: None)
  Receive Date: 20050525
  Receipt Date: 20050516
  Transmission Date: 20051028
  Serious: Yes (Hospitalization)
  Sender: FDA-Public Use
  Company Number: 2005076936

PATIENT
  Age: 57 Year
  Sex: Female

DRUGS (1)
  1. NEURONTIN [Suspect]
     Indication: NEURALGIA
     Dosage: 2.4 GRAM (1 IN 1 D), ORAL
     Route: 048
     Dates: start: 20040108, end: 20050329

REACTIONS (1)
  - TOXIC SKIN ERUPTION [None]
